FAERS Safety Report 15478187 (Version 1)
Quarter: 2018Q4

REPORT INFORMATION
  Report Type: Spontaneous
  Country: BR (occurrence: BR)
  Receive Date: 20181009
  Receipt Date: 20181009
  Transmission Date: 20190205
  Serious: Yes (Other)
  Sender: FDA-Public Use
  Company Number: BR-TORRENT-00004642

PATIENT
  Age: 17 Year
  Sex: Female
  Weight: 41 kg

DRUGS (3)
  1. RESPIDON [Suspect]
     Active Substance: RISPERIDONE
     Indication: HALLUCINATION, AUDITORY
     Dosage: ONE TABLET AT NIGHT
     Dates: start: 2005
  2. LAMITOR CD [Suspect]
     Active Substance: LAMOTRIGINE
     Indication: SEIZURE
     Dosage: ONE TABLET OF 50 MG AND ONE TABLET OF 100 MG DAILY
     Route: 048
     Dates: start: 20180914
  3. PRIMERA 30 (DESOGESTREL/ETHINYLESTRADIOL) [Concomitant]
     Active Substance: DESOGESTREL\ETHINYL ESTRADIOL
     Indication: CONTRACEPTION
     Dosage: ONE TAB AT NIGHT
     Route: 048
     Dates: start: 20180921

REACTIONS (1)
  - Drug ineffective [Not Recovered/Not Resolved]

NARRATIVE: CASE EVENT DATE: 20180923
